FAERS Safety Report 17265146 (Version 2)
Quarter: 2020Q1

REPORT INFORMATION
  Report Type: Spontaneous
  Country: FR (occurrence: FR)
  Receive Date: 20200113
  Receipt Date: 20200124
  Transmission Date: 20200409
  Serious: Yes (Hospitalization)
  Sender: FDA-Public Use
  Company Number: FR-ABBVIE-20K-056-3228807-00

PATIENT
  Age: 2 Month
  Sex: Male

DRUGS (2)
  1. SYNAGIS [Suspect]
     Active Substance: PALIVIZUMAB
     Dosage: 2ND INJECTION
     Route: 065
     Dates: start: 20191217, end: 20191217
  2. SYNAGIS [Suspect]
     Active Substance: PALIVIZUMAB
     Indication: PRODUCT USED FOR UNKNOWN INDICATION
     Dosage: 1ST INJECTION
     Route: 065
     Dates: start: 20191126, end: 20191126

REACTIONS (1)
  - Respiratory syncytial virus bronchiolitis [Unknown]

NARRATIVE: CASE EVENT DATE: 201912
